FAERS Safety Report 6657195-9 (Version None)
Quarter: 2010Q1

REPORT INFORMATION
  Report Type: 
  Country: None (occurrence: None)
  Receive Date: 20100325
  Receipt Date: 20100319
  Transmission Date: 20100710
  Serious: Yes (Hospitalization)
  Sender: FDA-Public Use
  Company Number: WAES 1003USA03181

PATIENT
  Age: 74 Year
  Sex: Female

DRUGS (11)
  1. CAP VORINOSTAT UNK [Suspect]
     Indication: NON-HODGKIN'S LYMPHOMA
     Dosage: PO
     Route: 048
     Dates: start: 20100205, end: 20100305
  2. CYCLOPHOSPHAMIDE [Suspect]
     Indication: NON-HODGKIN'S LYMPHOMA
     Dosage: PO
     Route: 048
     Dates: start: 20100205, end: 20100305
  3. ETOPOSIDE [Suspect]
     Indication: NON-HODGKIN'S LYMPHOMA
     Dosage: PO
     Route: 048
     Dates: start: 20100205, end: 20100305
  4. PREDNISOLONE [Suspect]
     Indication: NON-HODGKIN'S LYMPHOMA
     Dosage: PO
     Route: 048
     Dates: start: 20100205, end: 20100305
  5. RITUXIMAB [Suspect]
     Indication: NON-HODGKIN'S LYMPHOMA
     Dosage: IV
     Route: 042
     Dates: start: 20100205, end: 20100305
  6. HYDROMORPHONE HCL [Concomitant]
  7. LEVOTHYROXINE SODIUM [Concomitant]
  8. LORAZEPAM [Concomitant]
  9. VITAMIBN D (UNSPECIFIED) [Concomitant]
  10. VITAMINS (UNSPECIFIED) [Concomitant]
  11. ZOLPIDEM TARTRATE [Concomitant]

REACTIONS (2)
  - NEUTROPENIC SEPSIS [None]
  - PANCYTOPENIA [None]
